FAERS Safety Report 14886782 (Version 1)
Quarter: 2018Q2

REPORT INFORMATION
  Report Type: Report from Study
  Country: CO (occurrence: CO)
  Receive Date: 20180512
  Receipt Date: 20180512
  Transmission Date: 20180711
  Serious: Yes (Other)
  Sender: FDA-Public Use
  Company Number: CO-NOVOPROD-598953

PATIENT
  Age: 42 Year
  Sex: Female
  Weight: 50 kg

DRUGS (5)
  1. METFORMIN [Concomitant]
     Active Substance: METFORMIN HYDROCHLORIDE
     Indication: TYPE 2 DIABETES MELLITUS
     Dosage: UNK (TID)
     Route: 048
  2. PARACETAMOL [Concomitant]
     Active Substance: ACETAMINOPHEN
     Indication: PAIN MANAGEMENT
     Dosage: 500 MG, QD
     Route: 048
  3. INSULIN GLULISINE [Concomitant]
     Active Substance: INSULIN GLULISINE
     Indication: TYPE 2 DIABETES MELLITUS
     Dosage: 10 U, TID
     Route: 058
     Dates: start: 2017
  4. LEVOTHYROXINE. [Concomitant]
     Active Substance: LEVOTHYROXINE
     Indication: HYPOTHYROIDISM
     Dosage: 50 ?G, QD
     Route: 048
  5. LEVEMIR [Suspect]
     Active Substance: INSULIN DETEMIR
     Indication: TYPE 2 DIABETES MELLITUS
     Dosage: 45 U, QD
     Route: 058
     Dates: start: 2017

REACTIONS (1)
  - Diabetic retinopathy [Not Recovered/Not Resolved]

NARRATIVE: CASE EVENT DATE: 2017
